FAERS Safety Report 7703588-8 (Version None)
Quarter: 2011Q3

REPORT INFORMATION
  Report Type: 
  Country: None (occurrence: None)
  Receive Date: 20110823
  Receipt Date: 20110811
  Transmission Date: 20111222
  Serious: Yes (Other)
  Sender: FDA-Public Use
  Company Number: PHHY2011TW64391

PATIENT
  Sex: Female

DRUGS (2)
  1. GLEEVEC [Suspect]
     Indication: GASTROINTESTINAL STROMAL TUMOUR
     Dosage: 400 MG/DAY
     Route: 048
  2. GLEEVEC [Suspect]
     Dosage: 200 MG OR 300 MG DAILY
     Route: 048

REACTIONS (7)
  - CHILLS [None]
  - PRURITUS GENERALISED [None]
  - GENERALISED ERYTHEMA [None]
  - SKIN EXFOLIATION [None]
  - SWELLING [None]
  - OTORRHOEA [None]
  - GASTROINTESTINAL DISORDER [None]
